FAERS Safety Report 9699174 (Version 1)
Quarter: 2013Q4

REPORT INFORMATION
  Report Type: Spontaneous
  Country: US (occurrence: US)
  Receive Date: 20131120
  Receipt Date: 20131120
  Transmission Date: 20140711
  Serious: No
  Sender: FDA-Public Use
  Company Number: US-GILEAD-2008-0014927

PATIENT
  Sex: Female
  Weight: 61.01 kg

DRUGS (18)
  1. LETAIRIS [Suspect]
     Indication: PULMONARY ARTERIAL HYPERTENSION
     Route: 048
  2. COUMADIN [Concomitant]
     Dosage: UD
     Route: 048
  3. DIGOXIN [Concomitant]
     Dosage: UD
     Route: 048
  4. LASIX [Concomitant]
     Dosage: UD
     Route: 048
  5. ASPIRIN [Concomitant]
     Dosage: UD
     Route: 048
  6. RENEXA [Concomitant]
     Dosage: UD
     Route: 048
  7. NITROPATCH [Concomitant]
     Dosage: UD
     Route: 048
  8. ENALAPRIL [Concomitant]
     Dosage: UD
     Route: 048
  9. DARVOCET-N-100 [Concomitant]
     Dosage: UD
     Route: 048
  10. VICODIN [Concomitant]
     Dosage: UD
     Route: 048
  11. SINGULAIR [Concomitant]
     Dosage: UD
     Route: 048
  12. SYNTHROID [Concomitant]
     Dosage: UD
     Route: 048
  13. ALPRAZOLAM [Concomitant]
     Dosage: UD
     Route: 048
  14. ZOCOR [Concomitant]
     Dosage: UD
     Route: 048
  15. NEXIUM [Concomitant]
     Dosage: UD
     Route: 048
  16. BONIVA [Concomitant]
     Dosage: UD
     Route: 048
  17. VITAMIN A [Concomitant]
     Dosage: UD
     Route: 048
  18. MULTIVITAMIN [Concomitant]
     Dosage: UD
     Route: 048

REACTIONS (3)
  - Swelling face [None]
  - Eye swelling [None]
  - Abdominal pain upper [None]
